FAERS Safety Report 4475284-4 (Version None)
Quarter: 2004Q4

REPORT INFORMATION
  Report Type: 
  Country: None (occurrence: None)
  Receive Date: 20041015
  Receipt Date: 20040702
  Transmission Date: 20050328
  Serious: Yes (Disabling)
  Sender: FDA-Public Use
  Company Number: PHBS2004IE09003

PATIENT
  Age: 41 Year
  Sex: Female

DRUGS (1)
  1. NEORAL [Suspect]
     Indication: DERMATITIS ATOPIC
     Dosage: 225 MG/D
     Route: 048
     Dates: start: 20040422, end: 20040713

REACTIONS (2)
  - ALOPECIA TOTALIS [None]
  - NAUSEA [None]
